FAERS Safety Report 10656977 (Version 2)
Quarter: 2015Q1

REPORT INFORMATION
  Report Type: Spontaneous
  Country: JP (occurrence: JP)
  Receive Date: 20141217
  Receipt Date: 20150108
  Transmission Date: 20150720
  Serious: Yes (Other)
  Sender: FDA-Public Use
  Company Number: PHHY2014JP164287

PATIENT
  Age: 52 Year
  Sex: Male

DRUGS (1)
  1. ZOMETA [Suspect]
     Active Substance: ZOLEDRONIC ACID
     Indication: METASTASES TO BONE
     Dosage: 4 MG, (PER ADMINISTRATION)
     Route: 041
     Dates: start: 201408, end: 20141211

REACTIONS (6)
  - Osteonecrosis of jaw [Not Recovered/Not Resolved]
  - Toothache [Unknown]
  - Pain [Unknown]
  - Erythema [Unknown]
  - Bone lesion [Unknown]
  - Swelling [Unknown]

NARRATIVE: CASE EVENT DATE: 20141211
